FAERS Safety Report 10292284 (Version 8)
Quarter: 2015Q3

REPORT INFORMATION
  Report Type: Report from Study
  Country: US (occurrence: US)
  Receive Date: 20140710
  Receipt Date: 20150820
  Transmission Date: 20151125
  Serious: Yes (Hospitalization)
  Sender: FDA-Public Use
  Company Number: US-ACTELION-A-US2013-89660

PATIENT
  Age: 74 Year
  Sex: Female

DRUGS (12)
  1. PREMARIN [Concomitant]
     Active Substance: ESTROGENS, CONJUGATED
     Dosage: 0.625 MG, QD
     Dates: start: 1992
  2. COUMADIN [Concomitant]
     Active Substance: WARFARIN SODIUM
     Dosage: 7.5 MG, 5 DAYS
     Dates: start: 1995
  3. IMURAN [Concomitant]
     Active Substance: AZATHIOPRINE
     Dosage: 50 MG, QD
     Dates: start: 2009
  4. LASIX [Concomitant]
     Active Substance: FUROSEMIDE
     Dosage: 40 MG, QD
     Dates: start: 1988
  5. NEXIUM [Concomitant]
     Active Substance: ESOMEPRAZOLE MAGNESIUM
     Dosage: 40 MG, QD
     Dates: start: 1995
  6. TEGRETOL [Concomitant]
     Active Substance: CARBAMAZEPINE
     Dosage: 200 MG, BID
     Dates: start: 1998
  7. COUMADIN [Concomitant]
     Active Substance: WARFARIN SODIUM
     Dosage: 10 MG, 2 DAYS
     Dates: start: 1995
  8. POTASSIUM [Concomitant]
     Active Substance: POTASSIUM
     Dosage: 10 MEQ, UNK
     Dates: start: 1988
  9. TRACLEER [Suspect]
     Active Substance: BOSENTAN
     Indication: PULMONARY ARTERIAL HYPERTENSION
     Dosage: 125 MG, BID
     Route: 048
     Dates: start: 2009
  10. MESTINON [Concomitant]
     Active Substance: PYRIDOSTIGMINE BROMIDE
     Dosage: 60 MG, QID
     Dates: start: 1987
  11. TRACLEER [Suspect]
     Active Substance: BOSENTAN
     Dosage: 62.5 MG, BID
     Route: 048
     Dates: start: 2009, end: 2009
  12. PREDNISONE. [Concomitant]
     Active Substance: PREDNISONE
     Dosage: 10 MG, QD
     Dates: start: 1987

REACTIONS (15)
  - Heart rate irregular [Unknown]
  - Pneumonia [Unknown]
  - Dyspnoea [Unknown]
  - Atrial fibrillation [Unknown]
  - Cardiac pacemaker insertion [Unknown]
  - Fluid retention [Unknown]
  - Heart rate increased [Unknown]
  - Dizziness [Unknown]
  - Cardiac disorder [Unknown]
  - Peripheral swelling [Unknown]
  - Pulmonary arterial hypertension [Unknown]
  - Cellulitis [Unknown]
  - Systemic lupus erythematosus [Recovering/Resolving]
  - Hypotension [Recovering/Resolving]
  - Presyncope [Unknown]

NARRATIVE: CASE EVENT DATE: 20130923
